FAERS Safety Report 4357838-9 (Version None)
Quarter: 2004Q2

REPORT INFORMATION
  Report Type: 
  Country: None (occurrence: None)
  Receive Date: 20040512
  Receipt Date: 20040428
  Transmission Date: 20050107
  Serious: Yes (Hospitalization)
  Sender: FDA-Public Use
  Company Number: EM2004-0222

PATIENT

DRUGS (4)
  1. PROLEUKIN; CHIRON COPORATION (ALDESLEUKIN) INJECTION [Suspect]
     Indication: RENAL CELL CARCINOMA STAGE UNSPECIFIED
  2. INTERFERON ALFA (INTERFERON ALFA) [Suspect]
     Indication: RENAL CELL CARCINOMA STAGE UNSPECIFIED
  3. FLUOROURACIL [Suspect]
     Indication: RENAL CELL CARCINOMA STAGE UNSPECIFIED
  4. DOMPERIDONE (DOMPERIDONE) [Concomitant]

REACTIONS (2)
  - DRY SKIN [None]
  - SKIN DESQUAMATION [None]
